FAERS Safety Report 7460906-6 (Version None)
Quarter: 2011Q2

REPORT INFORMATION
  Report Type: 
  Country: None (occurrence: None)
  Receive Date: 20110505
  Receipt Date: 20110426
  Transmission Date: 20111010
  Serious: Yes (Hospitalization)
  Sender: FDA-Public Use
  Company Number: US-ALLERGAN-1105940US

PATIENT
  Age: 4 Month
  Sex: Male

DRUGS (2)
  1. BOTULINUM TOXIN TYPE A [Suspect]
     Dosage: 20 UNITS, UNK
  2. BOTULINUM TOXIN TYPE A [Suspect]
     Indication: OESOPHAGEAL ACHALASIA
     Dosage: 30 UNITS, SINGLE

REACTIONS (4)
  - ASPIRATION [None]
  - PNEUMONIA ASPIRATION [None]
  - DYSPHAGIA [None]
  - GASTROOESOPHAGEAL REFLUX DISEASE [None]
